FAERS Safety Report 5804684-2 (Version None)
Quarter: 2008Q3

REPORT INFORMATION
  Report Type: 
  Country: None (occurrence: None)
  Receive Date: 20080709
  Receipt Date: 20080701
  Transmission Date: 20090109
  Serious: No
  Sender: FDA-Public Use
  Company Number: FR-ELI_LILLY_AND_COMPANY-FR200807000353

PATIENT
  Age: 69 Year
  Sex: Male

DRUGS (2)
  1. CIALIS [Suspect]
     Indication: ERECTILE DYSFUNCTION
     Dosage: 20 MG, AS NEEDED
     Route: 048
  2. XALATAN [Concomitant]
     Indication: INTRAOCULAR PRESSURE TEST
     Dosage: 1 DROP, DAILY (1/D)

REACTIONS (2)
  - HEADACHE [None]
  - INTRAOCULAR PRESSURE TEST ABNORMAL [None]
